FAERS Safety Report 5629795-6 (Version None)
Quarter: 2008Q1

REPORT INFORMATION
  Report Type: 
  Country: None (occurrence: None)
  Receive Date: 20080214
  Receipt Date: 20080203
  Transmission Date: 20080703
  Serious: Yes (Disabling, Other)
  Sender: FDA-Public Use
  Company Number: OSCN-NO-0708L-0320

PATIENT
  Age: 58 Year
  Weight: 93.5 kg

DRUGS (1)
  1. OMNISCAN [Suspect]
     Indication: DRUG USE FOR UNKNOWN INDICATION
     Dosage: 40 ML, SINGLE DOSE, I.V.
     Route: 042

REACTIONS (2)
  - NEPHROGENIC SYSTEMIC FIBROSIS [None]
  - RENAL TRANSPLANT [None]
